FAERS Safety Report 13871315 (Version 1)
Quarter: 2017Q3

REPORT INFORMATION
  Report Type: Spontaneous
  Country: US (occurrence: US)
  Receive Date: 20170816
  Receipt Date: 20170816
  Transmission Date: 20171127
  Serious: Yes (Other)
  Sender: FDA-Public Use
  Company Number: US-BAYER-2017-107519

PATIENT
  Age: 78 Year
  Sex: Male
  Weight: 73 kg

DRUGS (4)
  1. AMLODIPINE [Concomitant]
     Active Substance: AMLODIPINE BESYLATE
  2. TRAMADOL. [Concomitant]
     Active Substance: TRAMADOL
  3. ALEVE [Suspect]
     Active Substance: NAPROXEN SODIUM
     Indication: HEADACHE
     Dosage: UNK
     Route: 048
     Dates: start: 2016
  4. BAYER ASPIRIN [Suspect]
     Active Substance: ASPIRIN
     Route: 048

REACTIONS (5)
  - Gastric ulcer haemorrhage [Recovered/Resolved]
  - Therapeutic product effective for unapproved indication [Unknown]
  - Gastric haemorrhage [Recovered/Resolved]
  - Drug ineffective [Unknown]
  - Device use issue [Unknown]
